FAERS Safety Report 7404953-9 (Version None)
Quarter: 2011Q2

REPORT INFORMATION
  Report Type: 
  Country: None (occurrence: None)
  Receive Date: 20110411
  Receipt Date: 20110404
  Transmission Date: 20111010
  Serious: Yes (Other)
  Sender: FDA-Public Use
  Company Number: DE-ELI_LILLY_AND_COMPANY-DE201104000966

PATIENT
  Age: 67 Year
  Sex: Female

DRUGS (4)
  1. FORTEO [Suspect]
     Indication: OSTEOPOROSIS
     Dosage: UNK
     Route: 058
     Dates: start: 20091017
  2. METHOTREXATE [Concomitant]
  3. ANTIBIOTICS [Concomitant]
  4. CORTISONE [Concomitant]

REACTIONS (4)
  - BRONCHITIS BACTERIAL [None]
  - FATIGUE [None]
  - PERTUSSIS [None]
  - ASTHENIA [None]
